FAERS Safety Report 17074905 (Version 1)
Quarter: 2019Q4

REPORT INFORMATION
  Report Type: Spontaneous
  Country: GB (occurrence: GB)
  Receive Date: 20191126
  Receipt Date: 20191126
  Transmission Date: 20200122
  Serious: Yes (Other)
  Sender: FDA-Public Use
  Company Number: GB-TEVA-2019-GB-1141034

PATIENT
  Age: 46 Year
  Sex: Female
  Weight: 67.7 kg

DRUGS (5)
  1. COLECALCIFEROL [Concomitant]
     Active Substance: CHOLECALCIFEROL
     Dosage: 800 IU 1 DAYS
     Dates: start: 201807
  2. PREGABALIN. [Suspect]
     Active Substance: PREGABALIN
     Indication: PAIN
     Dosage: INITIALLY 75MG TWICE A DAY INCREASED TO 150MG TWICE A DAY ON 5.10.18 , 150 MG 1 DAYS
     Route: 048
     Dates: start: 20180925, end: 20181005
  3. CASSIA [Concomitant]
     Dosage: 1-2 AT NIGHT.
     Dates: start: 20181005
  4. PREGABALIN. [Suspect]
     Active Substance: PREGABALIN
     Indication: PAIN
     Dosage: 300 MG 1 DAYS
     Route: 048
     Dates: start: 20181005, end: 20181015
  5. ZAPAIN [Concomitant]
     Active Substance: ACETAMINOPHEN\CODEINE PHOSPHATE
     Dosage: 1-2 FOUR TIMES A DAY
     Dates: start: 20181005

REACTIONS (1)
  - Hepatitis [Recovered/Resolved with Sequelae]

NARRATIVE: CASE EVENT DATE: 20181017
